FAERS Safety Report 7149652-6 (Version None)
Quarter: 2010Q4

REPORT INFORMATION
  Report Type: 
  Country: None (occurrence: None)
  Receive Date: 20101209
  Receipt Date: 20101207
  Transmission Date: 20110411
  Serious: Yes (Other)
  Sender: FDA-Public Use
  Company Number: GB-MERCK-1012GBR00032

PATIENT
  Age: 6 Year
  Sex: Male
  Weight: 22 kg

DRUGS (6)
  1. SINGULAIR [Suspect]
     Indication: ILL-DEFINED DISORDER
     Route: 048
     Dates: start: 20090720
  2. PREDNISOLONE SODIUM PHOSPHATE [Concomitant]
     Indication: ILL-DEFINED DISORDER
     Route: 065
     Dates: start: 20101128
  3. ALBUTEROL [Concomitant]
     Indication: ILL-DEFINED DISORDER
     Route: 065
     Dates: start: 20100903, end: 20101001
  4. ALBUTEROL [Concomitant]
     Route: 065
     Dates: start: 20101110
  5. FLUTICASONE PROPIONATE AND SALMETEROL XINAFOATE [Concomitant]
     Indication: ILL-DEFINED DISORDER
     Route: 065
     Dates: start: 20100903, end: 20101029
  6. FLUTICASONE PROPIONATE AND SALMETEROL XINAFOATE [Concomitant]
     Route: 065
     Dates: start: 20101110

REACTIONS (1)
  - ALOPECIA [None]
